FAERS Safety Report 25082900 (Version 1)
Quarter: 2025Q1

REPORT INFORMATION
  Report Type: Spontaneous
  Country: GB (occurrence: GB)
  Receive Date: 20250317
  Receipt Date: 20250317
  Transmission Date: 20250408
  Serious: Yes (Other)
  Sender: SANDOZ
  Company Number: GB-MHRA-TPP4532885C2288841YC1741859050890

PATIENT
  Age: 84 Year
  Sex: Female
  Weight: 69 kg

DRUGS (6)
  1. BRINZOLAMIDE [Suspect]
     Active Substance: BRINZOLAMIDE
     Indication: Ill-defined disorder
     Dosage: UNK UNK, QD
     Route: 065
     Dates: start: 20250221
  2. AMLODIPINE [Concomitant]
     Active Substance: AMLODIPINE BESYLATE
     Indication: Ill-defined disorder
     Route: 065
     Dates: start: 20240816
  3. CALCEOS [Concomitant]
     Active Substance: CALCIUM CARBONATE\CHOLECALCIFEROL
     Indication: Ill-defined disorder
     Route: 065
     Dates: start: 20240816
  4. DORZOLAMIDE [Concomitant]
     Active Substance: DORZOLAMIDE
     Indication: Ill-defined disorder
     Route: 065
     Dates: start: 20240816
  5. ALBUTEROL [Concomitant]
     Active Substance: ALBUTEROL
     Indication: Ill-defined disorder
     Route: 065
     Dates: start: 20240816
  6. TRAVOPROST [Concomitant]
     Active Substance: TRAVOPROST
     Indication: Ill-defined disorder
     Route: 065
     Dates: start: 20240816

REACTIONS (2)
  - Tongue erythema [Recovered/Resolved]
  - Mouth haemorrhage [Recovered/Resolved]
